FAERS Safety Report 4730334-2 (Version None)
Quarter: 2005Q3

REPORT INFORMATION
  Report Type: 
  Country: None (occurrence: None)
  Receive Date: 20050729
  Receipt Date: 20050718
  Transmission Date: 20060218
  Serious: Yes (Congenital Anomaly)
  Sender: FDA-Public Use
  Company Number: GXKR2005GB01342

PATIENT
  Sex: 0

DRUGS (3)
  1. DIAZEPAM [Suspect]
     Dosage: 5 MG, TRANSPLACENTAL
     Route: 064
  2. FLUOXETINE [Suspect]
     Dosage: 40 MG, TRANSPLACENTAL
     Route: 064
  3. PROPRANOLOL [Suspect]
     Dosage: 40 MG, TRANSPLACENTAL
     Route: 064

REACTIONS (2)
  - DRUG EXPOSURE DURING PREGNANCY [None]
  - GASTROSCHISIS [None]
